FAERS Safety Report 9857032 (Version 3)
Quarter: 2014Q3

REPORT INFORMATION
  Report Type: Spontaneous
  Country: US (occurrence: US)
  Receive Date: 20140130
  Receipt Date: 20140722
  Transmission Date: 20150326
  Serious: Yes (Death, Other)
  Sender: FDA-Public Use
  Company Number: US-GILEAD-2014-0093288

PATIENT
  Age: 67 Year
  Sex: Male

DRUGS (1)
  1. LETAIRIS [Suspect]
     Active Substance: AMBRISENTAN
     Indication: PRODUCT USED FOR UNKNOWN INDICATION
     Dosage: 10 MG, QD
     Route: 048
     Dates: start: 20130110

REACTIONS (8)
  - Death [Fatal]
  - Cough [Not Recovered/Not Resolved]
  - Middle insomnia [Unknown]
  - Exercise tolerance decreased [Unknown]
  - Dyspnoea [Not Recovered/Not Resolved]
  - Respiratory tract infection [Unknown]
  - Pulmonary function test decreased [Unknown]
  - Syncope [Unknown]

NARRATIVE: CASE EVENT DATE: 20140109
